FAERS Safety Report 19887594 (Version 2)
Quarter: 2022Q3

REPORT INFORMATION
  Report Type: Report from Study
  Country: ZA (occurrence: ZA)
  Receive Date: 20210928
  Receipt Date: 20220816
  Transmission Date: 20221026
  Serious: Yes (Death)
  Sender: FDA-Public Use
  Company Number: ZA-NOVOPROD-849050

PATIENT
  Age: 57 Year
  Sex: Female

DRUGS (6)
  1. ATORVASTATIN CALCIUM [Concomitant]
     Active Substance: ATORVASTATIN CALCIUM
     Indication: Blood cholesterol
     Dosage: 40 MG
     Route: 048
     Dates: end: 202108
  2. BECLATE AQUANASE [Concomitant]
     Indication: Hypersensitivity
     Dosage: 50 ?G
     Route: 045
     Dates: end: 202108
  3. INDAPAMIDE\PERINDOPRIL [Concomitant]
     Active Substance: INDAPAMIDE\PERINDOPRIL
     Indication: Hypertension
     Dosage: 4/1.25 MG
     Route: 048
     Dates: end: 202108
  4. CARVEDILOL [Concomitant]
     Active Substance: CARVEDILOL
     Indication: Hypertension
     Dosage: 12.50  MG
     Route: 048
     Dates: end: 202108
  5. PANTOPRAZOLE SODIUM [Concomitant]
     Active Substance: PANTOPRAZOLE SODIUM
     Indication: Ulcer
     Dosage: 40 MG
     Route: 048
     Dates: end: 202108
  6. ESTRADIOL HEMIHYDRATE [Suspect]
     Active Substance: ESTRADIOL HEMIHYDRATE
     Indication: Hormone therapy
     Dosage: 2 MG
     Route: 048
     Dates: end: 202108

REACTIONS (1)
  - Cerebrovascular accident [Fatal]
